FAERS Safety Report 21838694 (Version 1)
Quarter: 2023Q1

REPORT INFORMATION
  Report Type: Report from Study
  Country: EG (occurrence: EG)
  Receive Date: 20230109
  Receipt Date: 20230109
  Transmission Date: 20230417
  Serious: Yes (Other)
  Sender: FDA-Public Use
  Company Number: EG-002147023-NVSC2023EG002122

PATIENT
  Age: 59 Year
  Sex: Male

DRUGS (5)
  1. ENTRESTO [Suspect]
     Active Substance: SACUBITRIL\VALSARTAN
     Indication: Cardiac failure
     Dosage: 1 DOSAGE FORM, BID
     Route: 048
     Dates: start: 202208, end: 20221215
  2. ENTRESTO [Suspect]
     Active Substance: SACUBITRIL\VALSARTAN
     Indication: Pulmonary oedema
  3. PANTOPRAZOLE SODIUM [Concomitant]
     Active Substance: PANTOPRAZOLE SODIUM
     Indication: Atherosclerosis prophylaxis
     Dosage: 1 DOSAGE FORM, QD
     Route: 065
     Dates: start: 202207
  4. CHOLEROSE [Concomitant]
     Indication: Cardiac disorder
     Dosage: 1 DOSAGE FORM, BID (ONCE IN THE MORNING AND ONCE AT NIGHT)
     Route: 065
     Dates: start: 202207
  5. TORSEMIDE [Concomitant]
     Active Substance: TORSEMIDE
     Indication: Diabetes mellitus
     Dosage: 1 DOSAGE FORM, QD (AT NIGHT)
     Route: 065
     Dates: start: 202207

REACTIONS (5)
  - Pain in extremity [Not Recovered/Not Resolved]
  - Agitation [Unknown]
  - Pain [Recovering/Resolving]
  - Fatigue [Unknown]
  - Pollakiuria [Unknown]

NARRATIVE: CASE EVENT DATE: 20220801
